FAERS Safety Report 9952261 (Version 1)
Quarter: 2014Q1

REPORT INFORMATION
  Report Type: Report from Study
  Country: US (occurrence: US)
  Receive Date: 20140304
  Receipt Date: 20140304
  Transmission Date: 20141002
  Serious: No
  Sender: FDA-Public Use
  Company Number: US-ABBVIE-13P-163-1071969-00

PATIENT
  Age: 55 Year
  Sex: Female
  Weight: 108.96 kg

DRUGS (8)
  1. HUMIRA [Suspect]
     Indication: PSORIATIC ARTHROPATHY
     Dates: start: 2011, end: 201301
  2. METHOTREXATE [Suspect]
     Indication: PSORIATIC ARTHROPATHY
  3. EFFEXOR [Suspect]
     Indication: DEPRESSION
  4. AMBIEN [Suspect]
     Indication: SLEEP DISORDER
  5. PREDNISONE [Concomitant]
     Indication: PSORIATIC ARTHROPATHY
  6. METFORMIN [Concomitant]
     Indication: GLUCOSE TOLERANCE IMPAIRED
  7. LEVOTHYROXINE [Concomitant]
     Indication: HYPOTHYROIDISM
  8. NEXIUM [Concomitant]
     Indication: GASTROOESOPHAGEAL REFLUX DISEASE

REACTIONS (1)
  - Hepatic enzyme increased [Recovered/Resolved]
